FAERS Safety Report 7995153-2 (Version None)
Quarter: 2011Q4

REPORT INFORMATION
  Report Type: 
  Country: None (occurrence: None)
  Receive Date: 20111220
  Receipt Date: 20111115
  Transmission Date: 20120403
  Serious: Yes (Hospitalization)
  Sender: FDA-Public Use
  Company Number: JP-GLAXOSMITHKLINE-B0763450A

PATIENT
  Sex: Female
  Weight: 64 kg

DRUGS (4)
  1. LENDORMIN [Concomitant]
     Indication: BIPOLAR DISORDER
     Dosage: .25MG PER DAY
     Route: 048
     Dates: start: 20111029
  2. DEPAKENE [Concomitant]
     Indication: BIPOLAR DISORDER
     Route: 048
     Dates: start: 20101213
  3. CLONAZEPAM [Suspect]
     Indication: BIPOLAR DISORDER
     Dosage: .5MG PER DAY
     Route: 048
     Dates: start: 20111029, end: 20111113
  4. LAMICTAL [Suspect]
     Indication: BIPOLAR DISORDER
     Dosage: 25MG ALTERNATE DAYS
     Route: 048
     Dates: start: 20111029, end: 20111112

REACTIONS (9)
  - ERYTHEMA [None]
  - NASOPHARYNGITIS [None]
  - C-REACTIVE PROTEIN INCREASED [None]
  - PYREXIA [None]
  - RASH [None]
  - LYMPH NODE PALPABLE [None]
  - PURPURA [None]
  - PERIVASCULAR DERMATITIS [None]
  - WHITE BLOOD CELL COUNT DECREASED [None]
